FAERS Safety Report 17128576 (Version 1)
Quarter: 2019Q4

REPORT INFORMATION
  Report Type: Spontaneous
  Country: US (occurrence: US)
  Receive Date: 20191115
  Receipt Date: 20191115
  Transmission Date: 20200122
  Serious: No
  Sender: FDA-Public Use
  Company Number: None

PATIENT
  Age: 49 Year
  Sex: Male

DRUGS (1)
  1. SIMPONI [Suspect]
     Active Substance: GOLIMUMAB
     Indication: PSORIATIC ARTHROPATHY
     Dosage: ?          OTHER
     Route: 058
     Dates: start: 201905, end: 201911

REACTIONS (2)
  - Treatment failure [None]
  - Quality of life decreased [None]

NARRATIVE: CASE EVENT DATE: 20191115
